FAERS Safety Report 18494472 (Version 1)
Quarter: 2020Q4

REPORT INFORMATION
  Report Type: Spontaneous
  Country: US (occurrence: US)
  Receive Date: 20201112
  Receipt Date: 20201112
  Transmission Date: 20210114
  Serious: No
  Sender: FDA-Public Use
  Company Number: US-GILEAD-2020-0503469

PATIENT
  Sex: Male

DRUGS (22)
  1. CHANTIX [Concomitant]
     Active Substance: VARENICLINE TARTRATE
  2. SILDENAFIL. [Concomitant]
     Active Substance: SILDENAFIL
  3. TESTOSTERONE. [Concomitant]
     Active Substance: TESTOSTERONE
  4. ALBUTEROL [SALBUTAMOL] [Concomitant]
     Active Substance: ALBUTEROL
  5. QUETIAPINE FUMARATE. [Concomitant]
     Active Substance: QUETIAPINE FUMARATE
  6. SOFOSBUVIR;VELPATASVIR [Suspect]
     Active Substance: SOFOSBUVIR\VELPATASVIR
     Indication: CHRONIC HEPATITIS C
     Dosage: 1 DOSAGE FORM, QD
     Route: 048
  7. CETIRIZINE [Concomitant]
     Active Substance: CETIRIZINE HYDROCHLORIDE
  8. CIALIS [Concomitant]
     Active Substance: TADALAFIL
  9. FLUTICASONE PROPIONATE. [Concomitant]
     Active Substance: FLUTICASONE PROPIONATE
  10. MIRTAZAPINE. [Concomitant]
     Active Substance: MIRTAZAPINE
  11. CITALOPRAM [Concomitant]
     Active Substance: CITALOPRAM HYDROBROMIDE
  12. COLACE [Concomitant]
     Active Substance: DOCUSATE SODIUM
  13. MELOXICAM. [Concomitant]
     Active Substance: MELOXICAM
  14. OMEPRAZOLE SODIUM [Concomitant]
     Active Substance: OMEPRAZOLE SODIUM
  15. BUPRENORPHINE. [Concomitant]
     Active Substance: BUPRENORPHINE
  16. CYCLOBENZAPRINE. [Concomitant]
     Active Substance: CYCLOBENZAPRINE
  17. FERROUS SULFATE. [Concomitant]
     Active Substance: FERROUS SULFATE
  18. GABAPENTIN. [Concomitant]
     Active Substance: GABAPENTIN
  19. SUBOXONE [Concomitant]
     Active Substance: BUPRENORPHINE HYDROCHLORIDE\NALOXONE HYDROCHLORIDE
  20. AMBIEN [Concomitant]
     Active Substance: ZOLPIDEM TARTRATE
  21. LISINOPRIL. [Concomitant]
     Active Substance: LISINOPRIL
  22. METOPROLOL. [Concomitant]
     Active Substance: METOPROLOL

REACTIONS (1)
  - Product dose omission issue [Unknown]
